FAERS Safety Report 13841589 (Version 1)
Quarter: 2017Q3

REPORT INFORMATION
  Report Type: Spontaneous
  Country: US (occurrence: US)
  Receive Date: 20170807
  Receipt Date: 20170807
  Transmission Date: 20171127
  Serious: Yes (Other)
  Sender: FDA-Public Use
  Company Number: US-AMGEN-USASP2016092795

PATIENT
  Age: 57 Year
  Sex: Female

DRUGS (2)
  1. NPLATE [Suspect]
     Active Substance: ROMIPLOSTIM
     Indication: IMMUNE THROMBOCYTOPENIC PURPURA
     Dosage: 418 MUG, UNK
     Route: 065
     Dates: start: 20160708
  2. NPLATE [Suspect]
     Active Substance: ROMIPLOSTIM
     Dosage: 1378 MUG, UNK
     Route: 065
     Dates: start: 20160715

REACTIONS (1)
  - Drug ineffective [Unknown]

NARRATIVE: CASE EVENT DATE: 201607
